FAERS Safety Report 22092675 (Version 1)
Quarter: 2023Q1

REPORT INFORMATION
  Report Type: Spontaneous
  Country: US (occurrence: US)
  Receive Date: 20230314
  Receipt Date: 20230314
  Transmission Date: 20230417
  Serious: No
  Sender: FDA-Public Use
  Company Number: US-002147023-NVSC2023US057502

PATIENT
  Sex: Female

DRUGS (3)
  1. XIIDRA [Suspect]
     Active Substance: LIFITEGRAST
     Indication: Product used for unknown indication
     Dosage: 5 %, BID
     Route: 065
  2. MOXIFLOXACIN [Suspect]
     Active Substance: MOXIFLOXACIN
     Indication: Product used for unknown indication
     Dosage: 4 DOSAGE FORM, QD (FOR 1 WEEK)
     Route: 065
  3. PREDNISOLONE ACETATE [Suspect]
     Active Substance: PREDNISOLONE ACETATE
     Indication: Product used for unknown indication
     Dosage: 4 DOSAGE FORM, QD (1 WEEK)
     Route: 065

REACTIONS (6)
  - Skin irritation [Unknown]
  - Discomfort [Unknown]
  - Pruritus [Unknown]
  - Eye irritation [Unknown]
  - Conjunctivitis [Unknown]
  - Dry eye [Unknown]
